FAERS Safety Report 17493981 (Version 1)
Quarter: 2020Q1

REPORT INFORMATION
  Report Type: Spontaneous
  Country: US (occurrence: US)
  Receive Date: 20200304
  Receipt Date: 20200304
  Transmission Date: 20200409
  Serious: Yes (Death, Hospitalization)
  Sender: FDA-Public Use
  Company Number: US-TEVA-2020-US-1193374

PATIENT
  Age: 39 Year
  Sex: Male

DRUGS (8)
  1. BUPROPION. [Suspect]
     Active Substance: BUPROPION
     Indication: INTENTIONAL OVERDOSE
  2. LORAZEPAM. [Concomitant]
     Active Substance: LORAZEPAM
     Indication: TREMOR
     Route: 065
  3. PROPOFOL. [Concomitant]
     Active Substance: PROPOFOL
     Indication: SEDATIVE THERAPY
     Route: 065
  4. EPINEPHRINE. [Suspect]
     Active Substance: EPINEPHRINE
     Indication: CARDIAC ARREST
     Route: 065
  5. BUPROPION. [Suspect]
     Active Substance: BUPROPION
     Indication: COMPLETED SUICIDE
     Dosage: INGESTED 46 BUPROPION TABLETS
     Route: 048
  6. MAGNESIUM [Suspect]
     Active Substance: MAGNESIUM
     Indication: CARDIAC ARREST
     Route: 065
  7. SODIUM BICARBONATE. [Suspect]
     Active Substance: SODIUM BICARBONATE
     Indication: CARDIAC ARREST
     Route: 065
  8. LEVETIRACETAM. [Concomitant]
     Active Substance: LEVETIRACETAM
     Indication: TREMOR
     Route: 065

REACTIONS (8)
  - Arrhythmia [Fatal]
  - Intentional overdose [Fatal]
  - Seizure [Fatal]
  - Cardiac arrest [Fatal]
  - Completed suicide [Fatal]
  - Brain injury [Fatal]
  - Drug ineffective [Unknown]
  - Myoclonus [Fatal]
